FAERS Safety Report 17142281 (Version 1)
Quarter: 2019Q4

REPORT INFORMATION
  Report Type: Spontaneous
  Country: US (occurrence: US)
  Receive Date: 20191211
  Receipt Date: 20191211
  Transmission Date: 20200122
  Serious: No
  Sender: FDA-Public Use
  Company Number: US-JUBILANT CADISTA PHARMACEUTICALS-2018JUB00456

PATIENT
  Age: 83 Year
  Sex: Female
  Weight: 69.39 kg

DRUGS (5)
  1. CRANBERRY. [Concomitant]
     Active Substance: CRANBERRY
  2. METHYLPREDNISOLONE. [Suspect]
     Active Substance: METHYLPREDNISOLONE
     Indication: GOUT
     Dosage: 4 MG, AS DIRECTED ON THE PACK
     Route: 048
     Dates: start: 20181030
  3. MYRBETRIQ [Concomitant]
     Active Substance: MIRABEGRON
  4. BABY ASPIRIN [Concomitant]
     Active Substance: ASPIRIN
  5. LISINOPRIL. [Concomitant]
     Active Substance: LISINOPRIL

REACTIONS (3)
  - Diarrhoea [Recovered/Resolved]
  - Headache [Recovering/Resolving]
  - Rectal haemorrhage [Recovered/Resolved]

NARRATIVE: CASE EVENT DATE: 20181030
